FAERS Safety Report 5206822-1 (Version None)
Quarter: 2006Q4

REPORT INFORMATION
  Report Type: 
  Country: None (occurrence: None)
  Receive Date: 20061031
  Receipt Date: 20060405
  Transmission Date: 20070319
  Serious: Yes (Hospitalization)
  Sender: FDA-Public Use
  Company Number: US017281

PATIENT
  Age: 37 Year
  Sex: Male

DRUGS (13)
  1. PROVIGIL [Suspect]
     Indication: DISTURBANCE IN ATTENTION
     Dosage: 200 MG, QD; ORAL
     Route: 048
     Dates: start: 20040101
  2. PROVIGIL [Suspect]
     Indication: SOMNOLENCE
     Dosage: 200 MG, QD; ORAL
     Route: 048
     Dates: start: 20040101
  3. PROVIGIL [Suspect]
     Indication: DISTURBANCE IN ATTENTION
     Dosage: 1200 MG, QD; ORAL
     Route: 048
     Dates: start: 20041201, end: 20050301
  4. PROVIGIL [Suspect]
     Indication: SOMNOLENCE
     Dosage: 1200 MG, QD; ORAL
     Route: 048
     Dates: start: 20041201, end: 20050301
  5. PROVIGIL [Suspect]
     Indication: DISTURBANCE IN ATTENTION
     Dosage: 1400 MG QD; ORAL
     Route: 048
     Dates: start: 20050301, end: 20060101
  6. PROVIGIL [Suspect]
     Indication: SOMNOLENCE
     Dosage: 1400 MG QD; ORAL
     Route: 048
     Dates: start: 20050301, end: 20060101
  7. PROVIGIL [Suspect]
     Indication: SOMNOLENCE
     Dosage: 1400 MG QD; ORAL
     Route: 048
     Dates: start: 20060127
  8. PROVIGIL [Suspect]
     Indication: SOMNOLENCE
     Dosage: 200 MG QD; ORAL
     Route: 048
     Dates: start: 20060323, end: 20060323
  9. PROVIGIL [Suspect]
     Indication: SOMNOLENCE
     Dosage: 400 MG QD; ORAL
     Route: 048
     Dates: start: 20060324, end: 20060326
  10. PROVIGIL [Suspect]
     Indication: SOMNOLENCE
     Dosage: 400 MG QD; ORAL
     Route: 048
     Dates: start: 20060328, end: 20060329
  11. REMERON [Concomitant]
  12. LEXAPRO [Concomitant]
  13. STRATTERA [Concomitant]

REACTIONS (1)
  - MANIA [None]
